FAERS Safety Report 19116548 (Version 3)
Quarter: 2021Q2

REPORT INFORMATION
  Report Type: Report from Study
  Country: US (occurrence: US)
  Receive Date: 20210410
  Receipt Date: 20210505
  Transmission Date: 20210717
  Serious: No
  Sender: FDA-Public Use
  Company Number: NVSC2021US076833

PATIENT
  Age: 42 Year
  Sex: Female

DRUGS (2)
  1. COSENTYX [Suspect]
     Active Substance: SECUKINUMAB
     Dosage: 150 MG, Q4W
     Route: 058
  2. COSENTYX [Suspect]
     Active Substance: SECUKINUMAB
     Indication: ANKYLOSING SPONDYLITIS
     Dosage: 150 MG, QW (FOR 5 WEEKS)
     Route: 058
     Dates: start: 20210224

REACTIONS (7)
  - Musculoskeletal stiffness [Unknown]
  - Pain [Unknown]
  - Joint range of motion decreased [Unknown]
  - Rash [Unknown]
  - Psoriasis [Unknown]
  - Arthralgia [Unknown]
  - Malaise [Unknown]

NARRATIVE: CASE EVENT DATE: 20160423
